FAERS Safety Report 16821248 (Version 5)
Quarter: 2019Q4

REPORT INFORMATION
  Report Type: Spontaneous
  Country: PT (occurrence: PT)
  Receive Date: 20190918
  Receipt Date: 20191024
  Transmission Date: 20200122
  Serious: Yes (Hospitalization, Other)
  Sender: FDA-Public Use
  Company Number: PT-ACCORD-154784

PATIENT
  Age: 95 Year
  Sex: Female

DRUGS (8)
  1. DIAZEPAM. [Interacting]
     Active Substance: DIAZEPAM
     Indication: INSOMNIA
     Dosage: AT NIGHT
     Route: 048
     Dates: start: 20180212, end: 20181013
  2. CARBAMAZEPINE. [Interacting]
     Active Substance: CARBAMAZEPINE
     Indication: TRIGEMINAL NEURALGIA
     Dosage: INTERMEDIATE RELEASE: AT NIGHT
     Route: 048
  3. FOLIC ACID. [Concomitant]
     Active Substance: FOLIC ACID
     Indication: ANAEMIA
  4. DIAZEPAM. [Interacting]
     Active Substance: DIAZEPAM
     Indication: INSOMNIA
     Dosage: AT NIGHT
     Route: 048
     Dates: start: 201802, end: 20180313
  5. ENALAPRIL [Concomitant]
     Active Substance: ENALAPRIL
     Indication: HYPERTENSION
  6. QUETIAPINE. [Suspect]
     Active Substance: QUETIAPINE
     Indication: INSOMNIA
     Dosage: QUETIAPINE IR, AT NIGHT
     Route: 048
     Dates: start: 20180309, end: 20180313
  7. RISPERIDONE. [Interacting]
     Active Substance: RISPERIDONE
     Indication: INSOMNIA
     Route: 048
     Dates: start: 20180312, end: 20180313
  8. IRON [Concomitant]
     Active Substance: IRON
     Indication: ANAEMIA

REACTIONS (2)
  - Drug interaction [Unknown]
  - Delirium [Recovered/Resolved]

NARRATIVE: CASE EVENT DATE: 2018
